FAERS Safety Report 6043390-9 (Version None)
Quarter: 2009Q1

REPORT INFORMATION
  Report Type: 
  Country: None (occurrence: None)
  Receive Date: 20090115
  Receipt Date: 20090107
  Transmission Date: 20090719
  Serious: Yes (Hospitalization)
  Sender: FDA-Public Use
  Company Number: 2009SP000445

PATIENT
  Age: 53 Year
  Sex: Male
  Weight: 58.514 kg

DRUGS (8)
  1. PEG-INTRON [Suspect]
     Indication: HEPATITIS C
     Dosage: 80 MCG;QW; SC
     Route: 058
     Dates: start: 20081105
  2. BLINDED SCH 503034 (S-P) (HCV PROTEASE INHIBITOR) [Suspect]
     Indication: HEPATITIS C
     Dosage: 800 MG;Q8H; PO
     Route: 048
     Dates: start: 20081203
  3. RIBAVIRIN [Suspect]
     Indication: HEPATITIS C
     Dosage: 800 MG; QD; PO
     Route: 048
     Dates: start: 20081105
  4. CHLORDIAZEPOXIDE [Concomitant]
  5. ESCITALOPRAM /01588502/ [Concomitant]
  6. ALPRAZOLAM (S-P) [Concomitant]
  7. ACETAMINOPHEN [Concomitant]
  8. IBUPROFEN [Concomitant]

REACTIONS (1)
  - PERINEAL CYST [None]
